FAERS Safety Report 6647742-5 (Version None)
Quarter: 2010Q1

REPORT INFORMATION
  Report Type: 
  Country: None (occurrence: None)
  Receive Date: 20100317
  Receipt Date: 20100305
  Transmission Date: 20100710
  Serious: Yes (Life-Threatening, Hospitalization)
  Sender: FDA-Public Use
  Company Number: 2010AP000438

PATIENT
  Age: 63 Year
  Sex: Female

DRUGS (1)
  1. RAMIPRIL [Suspect]
     Indication: HYPERTENSION
     Dosage: 2.5 MG;UNKNOWN;PO;UNKNOWN
     Route: 048
     Dates: end: 20100214

REACTIONS (3)
  - ANGIOEDEMA [None]
  - DROOLING [None]
  - SWOLLEN TONGUE [None]
